FAERS Safety Report 5706591-2 (Version None)
Quarter: 2008Q2

REPORT INFORMATION
  Report Type: 
  Country: None (occurrence: None)
  Receive Date: 20080414
  Receipt Date: 20080402
  Transmission Date: 20081010
  Serious: Yes (Death, Hospitalization)
  Sender: FDA-Public Use
  Company Number: POMP-1000115

PATIENT
  Sex: Female
  Weight: 8.3 kg

DRUGS (1)
  1. MYOZYME (ALGLUCOSIDASE ALFA) POWDER FOR SOLUTION FOR INFUSION [Suspect]
     Indication: GLYCOGEN STORAGE DISEASE TYPE II
     Dates: start: 20080101

REACTIONS (3)
  - CARDIAC DISORDER [None]
  - RESPIRATORY FAILURE [None]
  - RESPIRATORY TRACT INFECTION [None]
